FAERS Safety Report 5828439-8 (Version None)
Quarter: 2008Q3

REPORT INFORMATION
  Report Type: 
  Country: None (occurrence: None)
  Receive Date: 20080729
  Receipt Date: 20080715
  Transmission Date: 20090109
  Serious: Yes (Death)
  Sender: FDA-Public Use
  Company Number: 2008001681

PATIENT
  Age: 63 Year
  Sex: Female

DRUGS (3)
  1. ERLOTINIB          (ERLOTINIB) (TABLET) [Suspect]
     Indication: LUNG NEOPLASM MALIGNANT
     Dosage: (150 MG, QD), ORAL
     Route: 048
     Dates: start: 20080405
  2. FORADIL [Concomitant]
  3. PULMICORT [Concomitant]

REACTIONS (1)
  - DEATH [None]
